FAERS Safety Report 11610861 (Version 1)
Quarter: 2015Q4

REPORT INFORMATION
  Report Type: Spontaneous
  Country: US (occurrence: None)
  Receive Date: 20151007
  Receipt Date: 20151007
  Transmission Date: 20160304
  Serious: Yes (Death, Hospitalization)
  Sender: FDA-Public Use
  Company Number: None

PATIENT
  Age: 47 Year
  Sex: Male
  Weight: 79.7 kg

DRUGS (1)
  1. INTRON A [Suspect]
     Active Substance: INTERFERON ALFA-2B
     Dosage: 20 MILLIUM IU
     Dates: end: 20140523

REACTIONS (3)
  - Renal failure [None]
  - Disease progression [None]
  - General physical health deterioration [None]

NARRATIVE: CASE EVENT DATE: 20150925
